FAERS Safety Report 10260950 (Version 3)
Quarter: 2014Q4

REPORT INFORMATION
  Report Type: Spontaneous
  Country: IT (occurrence: None)
  Receive Date: 20140623
  Receipt Date: 20141020
  Transmission Date: 20150528
  Serious: Yes (Hospitalization)
  Sender: FDA-Public Use
  Company Number: IT2014K2255SPO

PATIENT
  Age: 61 Year
  Sex: Male

DRUGS (13)
  1. LANSOPRAZOLE. [Suspect]
     Active Substance: LANSOPRAZOLE
     Indication: PRODUCT USED FOR UNKNOWN INDICATION
     Dosage: 105 MG, TOTAL; ORAL
     Route: 048
     Dates: start: 20140423, end: 20140423
  2. SIMVASTATIN. [Suspect]
     Active Substance: SIMVASTATIN
     Indication: INTENTIONAL SELF-INJURY
     Dosage: 280 MG, TOTAL, ORAL
     Route: 048
     Dates: start: 20140423, end: 20140423
  3. ENALAPRIL MALEATE (+) HYDROCHLOROTHIAZIDE [Suspect]
     Active Substance: ENALAPRIL MALEATE\HYDROCHLOROTHIAZIDE
     Indication: INTENTIONAL SELF-INJURY
     Dosage: 227.5 MG, TOTAL, ORAL
     Route: 048
     Dates: start: 20140423, end: 20140423
  4. CITALOPRAM [Suspect]
     Active Substance: CITALOPRAM HYDROBROMIDE
     Indication: INTENTIONAL SELF-INJURY
     Dosage: 280 MG, TOTAL
     Route: 048
     Dates: start: 20140423, end: 20140423
  5. METFORMIN [Suspect]
     Active Substance: METFORMIN HYDROCHLORIDE
     Indication: INTENTIONAL SELF-INJURY
     Dosage: 35000 MG, TOTAL; ORAL
     Route: 048
     Dates: start: 20140423, end: 20140423
  6. METFORMIN [Suspect]
     Active Substance: METFORMIN HYDROCHLORIDE
     Indication: DIABETES MELLITUS
     Dosage: 35000 MG, TOTAL; ORAL
     Route: 048
     Dates: start: 20140423, end: 20140423
  7. ZEFFIX [Suspect]
     Active Substance: LAMIVUDINE
     Indication: INTENTIONAL SELF-INJURY
     Dosage: 140 MG, TOTAL; ORAL
     Route: 048
     Dates: start: 20140423, end: 20140423
  8. SIMVASTATIN. [Suspect]
     Active Substance: SIMVASTATIN
     Dosage: 280 MG, TOTAL, ORAL
     Route: 048
     Dates: start: 20140423, end: 20140423
  9. ZOLPIDEM [Suspect]
     Active Substance: ZOLPIDEM\ZOLPIDEM TARTRATE
     Indication: INTENTIONAL SELF-INJURY
     Route: 048
     Dates: start: 20140423
  10. DENIBAN (AMISULPRIDE) TABLET, 50 MG [Suspect]
     Active Substance: AMISULPRIDE
     Indication: INTENTIONAL SELF-INJURY
     Dosage: 500 MG, TOTAL; ORAL
     Route: 048
     Dates: end: 20140423
  11. LANSOPRAZOLE. [Suspect]
     Active Substance: LANSOPRAZOLE
     Indication: INTENTIONAL SELF-INJURY
     Dosage: 105 MG, TOTAL; ORAL
     Route: 048
     Dates: start: 20140423, end: 20140423
  12. ENALAPRIL MALEATE (+) HYDROCHLOROTHIAZIDE [Suspect]
     Active Substance: ENALAPRIL MALEATE\HYDROCHLOROTHIAZIDE
     Indication: PRODUCT USED FOR UNKNOWN INDICATION
     Dosage: 227.5 MG, TOTAL, ORAL
     Route: 048
     Dates: start: 20140423, end: 20140423
  13. CITALOPRAM [Suspect]
     Active Substance: CITALOPRAM HYDROBROMIDE
     Indication: PRODUCT USED FOR UNKNOWN INDICATION
     Dosage: 280 MG, TOTAL
     Route: 048
     Dates: start: 20140423, end: 20140423

REACTIONS (7)
  - Conduction disorder [None]
  - Depressed level of consciousness [None]
  - Drug abuse [None]
  - Intentional self-injury [None]
  - Metabolic acidosis [None]
  - Intentional overdose [None]
  - Hypotension [None]

NARRATIVE: CASE EVENT DATE: 20140423
